FAERS Safety Report 9269123 (Version 1)
Quarter: 2013Q2

REPORT INFORMATION
  Report Type: Spontaneous
  Country: US (occurrence: US)
  Receive Date: 20130503
  Receipt Date: 20130503
  Transmission Date: 20140414
  Serious: No
  Sender: FDA-Public Use
  Company Number: US-SHIRE-ALL1-2013-02790

PATIENT
  Sex: Female

DRUGS (5)
  1. LIALDA [Suspect]
     Indication: CROHN^S DISEASE
     Dosage: UNK UNK, UNKNOWN
     Route: 048
  2. PREDNISONE [Suspect]
     Indication: DISEASE PROGRESSION
     Dosage: 35 MG, 1X/DAY:QD
     Route: 065
  3. PREDNISONE [Suspect]
     Dosage: 20 MG, 3X/DAY:TID
     Route: 065
  4. PREDNISONE [Suspect]
     Dosage: 40 MG, 1X/DAY:QD
     Route: 065
  5. PREDNISONE [Suspect]
     Dosage: 20 MG, 1X/DAY:QD
     Route: 065

REACTIONS (3)
  - Crohn^s disease [Not Recovered/Not Resolved]
  - Lung disorder [Not Recovered/Not Resolved]
  - Off label use [Unknown]
